FAERS Safety Report 23843838 (Version 1)
Quarter: 2024Q2

REPORT INFORMATION
  Report Type: Spontaneous
  Country: CA (occurrence: CA)
  Receive Date: 20240510
  Receipt Date: 20240510
  Transmission Date: 20240716
  Serious: Yes (Other)
  Sender: FDA-Public Use
  Company Number: CA-TEVA-VS-3197115

PATIENT
  Age: 53 Year
  Sex: Female

DRUGS (10)
  1. LORAZEPAM [Suspect]
     Active Substance: LORAZEPAM
     Indication: Product used for unknown indication
     Route: 065
  2. ASPIRIN [Suspect]
     Active Substance: ASPIRIN
     Indication: Product used for unknown indication
     Route: 065
  3. DIAZEPAM [Suspect]
     Active Substance: DIAZEPAM
     Indication: Product used for unknown indication
     Route: 048
  4. EPIPEN [Concomitant]
     Active Substance: EPINEPHRINE
     Indication: Product used for unknown indication
     Route: 065
  5. GRAVOL [Concomitant]
     Active Substance: DIMENHYDRINATE
     Indication: Product used for unknown indication
     Route: 048
  6. REACTINE [Concomitant]
     Indication: Product used for unknown indication
     Route: 065
  7. REACTINE [Concomitant]
     Indication: Product used for unknown indication
     Route: 065
  8. ALUMINIUM HYDROXIDE/MAGNESIUM CARBONATE [Concomitant]
     Indication: Product used for unknown indication
     Route: 065
  9. ALUMINIUM HYDROXIDE/MAGNESIUM CARBONATE [Concomitant]
     Indication: Product used for unknown indication
     Route: 065
  10. ACETAMINOPHEN\OXYCODONE HYDROCHLORIDE\OXYCODONE TEREPHTHALATE [Concomitant]
     Active Substance: ACETAMINOPHEN\OXYCODONE HYDROCHLORIDE\OXYCODONE TEREPHTHALATE
     Indication: Product used for unknown indication
     Route: 048

REACTIONS (8)
  - Abdominal discomfort [Unknown]
  - Chills [Unknown]
  - Hypotension [Unknown]
  - Mast cell activation syndrome [Unknown]
  - Pituitary tumour benign [Unknown]
  - Postural orthostatic tachycardia syndrome [Unknown]
  - Rash pruritic [Unknown]
  - Vomiting [Unknown]
